FAERS Safety Report 23919644 (Version 1)
Quarter: 2024Q2

REPORT INFORMATION
  Report Type: Report from Study
  Country: US (occurrence: US)
  Receive Date: 20240530
  Receipt Date: 20240530
  Transmission Date: 20240716
  Serious: No
  Sender: FDA-Public Use
  Company Number: US-AstraZeneca-CH-00630830A

PATIENT

DRUGS (3)
  1. ULTOMIRIS [Suspect]
     Active Substance: RAVULIZUMAB-CWVZ
     Indication: Myasthenia gravis
     Dosage: UNK, EVERY 8 WEEKS
     Route: 065
  2. PYRIDOSTIGMINE [Concomitant]
     Active Substance: PYRIDOSTIGMINE
     Indication: Product used for unknown indication
     Dosage: 30 MILLIGRAM, 3-4 PER DAY PRN
     Route: 065
  3. MYCOPHENOLATE MOFETIL [Concomitant]
     Active Substance: MYCOPHENOLATE MOFETIL
     Indication: Product used for unknown indication
     Dosage: UNK, 4 TIMES A DAY PRN
     Route: 065

REACTIONS (7)
  - Therapeutic response shortened [Unknown]
  - Muscular weakness [Unknown]
  - Limb discomfort [Unknown]
  - Chest discomfort [Unknown]
  - Back pain [Recovered/Resolved]
  - Poor venous access [Unknown]
  - Dysphagia [Unknown]
